FAERS Safety Report 5466467-5 (Version None)
Quarter: 2007Q3

REPORT INFORMATION
  Report Type: 
  Country: None (occurrence: None)
  Receive Date: 20070820
  Receipt Date: 20070604
  Transmission Date: 20080115
  Serious: No
  Sender: FDA-Public Use
  Company Number: WAES 0706USA00627

PATIENT
  Age: 40 Year
  Sex: Female

DRUGS (5)
  1. JANUVIA [Suspect]
     Indication: DIABETES MELLITUS INADEQUATE CONTROL
     Dosage: 100 MG/DAILY/PO; 50 MG/DAILY/PO
     Route: 048
     Dates: start: 20070528, end: 20070530
  2. JANUVIA [Suspect]
     Indication: DIABETES MELLITUS INADEQUATE CONTROL
     Dosage: 100 MG/DAILY/PO; 50 MG/DAILY/PO
     Route: 048
     Dates: start: 20070531
  3. DIOVAN [Concomitant]
  4. PREVACID [Concomitant]
  5. ZYRTEC [Concomitant]

REACTIONS (2)
  - FAECES DISCOLOURED [None]
  - FEELING JITTERY [None]
